FAERS Safety Report 4600185-8 (Version None)
Quarter: 2005Q1

REPORT INFORMATION
  Report Type: 
  Country: None (occurrence: None)
  Receive Date: 20050303
  Receipt Date: 20050210
  Transmission Date: 20050727
  Serious: Yes (Other)
  Sender: FDA-Public Use
  Company Number: FR_041105190

PATIENT
  Age: 51 Year
  Sex: Male

DRUGS (12)
  1. HUMALOG MIX 50/50 [Suspect]
     Indication: DIABETES MELLITUS INSULIN-DEPENDENT
     Dosage: 50 IU/3 DAY
     Dates: start: 20030101
  2. SECTRAL [Concomitant]
  3. RENITEC [Concomitant]
  4. PLAVIX [Concomitant]
  5. ENDOTELON [Concomitant]
  6. ESBERIVEN [Concomitant]
  7. PRAXILENE (NAFTIDROFURYL OXALATE) [Concomitant]
  8. FERO-GRAD (FERROUS SULFATE) [Concomitant]
  9. CLONAZEPAM [Concomitant]
  10. EFFERALGAN CODEINE [Concomitant]
  11. MOPRAL (OMEPRAZOLE RATIOPHARM) [Concomitant]
  12. MOTILIUM (DOMPERIDONE MALEATE) [Concomitant]

REACTIONS (3)
  - DERMATITIS BULLOUS [None]
  - RASH MACULO-PAPULAR [None]
  - RASH VESICULAR [None]
